FAERS Safety Report 16178497 (Version 2)
Quarter: 2019Q4

REPORT INFORMATION
  Report Type: Report from Study
  Country: CA (occurrence: CA)
  Receive Date: 20190410
  Receipt Date: 20191007
  Transmission Date: 20200122
  Serious: Yes (Hospitalization)
  Sender: FDA-Public Use
  Company Number: CA-EISAI MEDICAL RESEARCH-EC-2019-054562

PATIENT
  Sex: Female

DRUGS (3)
  1. LAMOTRIGINE. [Concomitant]
     Active Substance: LAMOTRIGINE
  2. LEVETIRACETAM. [Concomitant]
     Active Substance: LEVETIRACETAM
  3. FYCOMPA [Suspect]
     Active Substance: PERAMPANEL
     Indication: GENERALISED TONIC-CLONIC SEIZURE
     Route: 048
     Dates: end: 201810

REACTIONS (3)
  - Fall [Unknown]
  - Myalgia [Unknown]
  - Feeling abnormal [Unknown]
